FAERS Safety Report 20025877 (Version 1)
Quarter: 2021Q4

REPORT INFORMATION
  Report Type: Spontaneous
  Country: US (occurrence: US)
  Receive Date: 20211102
  Receipt Date: 20211102
  Transmission Date: 20220303
  Serious: Yes (Hospitalization)
  Sender: FDA-Public Use
  Company Number: US-MYLANLABS-2021M1079467

PATIENT
  Age: 55 Year
  Sex: Male

DRUGS (1)
  1. APIXABAN [Suspect]
     Active Substance: APIXABAN
     Indication: Deep vein thrombosis
     Dosage: 10 MILLIGRAM, BID (SCHEDULED FOR 7 DAYS, FOLLOWED BY....
     Route: 048

REACTIONS (4)
  - Haemobilia [Recovered/Resolved]
  - Haemorrhagic cholecystitis [Recovered/Resolved]
  - Gallbladder disorder [Recovered/Resolved]
  - Haematoma [Recovered/Resolved]
